FAERS Safety Report 5814065-3 (Version None)
Quarter: 2008Q3

REPORT INFORMATION
  Report Type: 
  Country: None (occurrence: None)
  Receive Date: 20080717
  Receipt Date: 20080627
  Transmission Date: 20090109
  Serious: No
  Sender: FDA-Public Use
  Company Number: US-BOEHRINGER INGELHEIM GMBH, GERMANY-2008-BP-10174PF

PATIENT
  Sex: Male
  Weight: 85 kg

DRUGS (2)
  1. SPIRIVA [Suspect]
  2. CHANTIX [Suspect]
     Indication: SMOKING CESSATION THERAPY
     Dates: start: 20070301, end: 20070701

REACTIONS (2)
  - RASH MACULAR [None]
  - URTICARIA [None]
